FAERS Safety Report 14996829 (Version 1)
Quarter: 2018Q2

REPORT INFORMATION
  Report Type: Spontaneous
  Country: FR (occurrence: FR)
  Receive Date: 20180611
  Receipt Date: 20180611
  Transmission Date: 20180711
  Serious: Yes (Death)
  Sender: FDA-Public Use
  Company Number: FR-PFIZER INC-2018230021

PATIENT
  Age: 35 Year
  Sex: Male

DRUGS (4)
  1. NOZINAN /00038601/ [Suspect]
     Active Substance: LEVOMEPROMAZINE
     Indication: SCHIZOPHRENIA
     Dosage: 75 MG, 1X/DAY
     Route: 048
     Dates: start: 20180328, end: 20180328
  2. XANAX [Suspect]
     Active Substance: ALPRAZOLAM
     Indication: ANXIETY
     Dosage: 10 MG, SINGLE
     Route: 048
     Dates: start: 20180328, end: 20180328
  3. ABILIFY [Suspect]
     Active Substance: ARIPIPRAZOLE
     Indication: SCHIZOPHRENIA
     Dosage: 300 MG, SINGLE
     Route: 048
     Dates: start: 20180328, end: 20180328
  4. ANAFRANIL [Suspect]
     Active Substance: CLOMIPRAMINE HYDROCHLORIDE
     Indication: DEPRESSION
     Dosage: 50 MG, SINGLE
     Route: 048
     Dates: start: 20180328, end: 20180328

REACTIONS (3)
  - Somnolence [Fatal]
  - Overdose [Fatal]
  - Pneumonia aspiration [Fatal]

NARRATIVE: CASE EVENT DATE: 20180328
